FAERS Safety Report 5284770-9 (Version None)
Quarter: 2007Q1

REPORT INFORMATION
  Report Type: 
  Country: None (occurrence: None)
  Receive Date: 20061229
  Receipt Date: 20060626
  Transmission Date: 20070707
  Serious: Yes (Other)
  Sender: FDA-Public Use
  Company Number: PHEH2006US07553

PATIENT
  Sex: Male

DRUGS (1)
  1. CLOZARIL [Suspect]
     Indication: SCHIZOPHRENIA
     Dosage: 200 MG, BID, ORAL
     Route: 048

REACTIONS (4)
  - MALAISE [None]
  - PNEUMONIA [None]
  - RESPIRATORY TRACT INFECTION [None]
  - URINARY TRACT INFECTION [None]
